FAERS Safety Report 19511428 (Version 1)
Quarter: 2021Q3

REPORT INFORMATION
  Report Type: Spontaneous
  Country: CN (occurrence: CN)
  Receive Date: 20210709
  Receipt Date: 20210709
  Transmission Date: 20211014
  Serious: Yes (Hospitalization, Other)
  Sender: FDA-Public Use
  Company Number: CN-ASTRAZENECA-2021A601453

PATIENT
  Age: 27568 Day
  Sex: Female
  Weight: 45 kg

DRUGS (1)
  1. TAGRISSO [Suspect]
     Active Substance: OSIMERTINIB
     Indication: LUNG NEOPLASM MALIGNANT
     Route: 048
     Dates: start: 20210619, end: 20210625

REACTIONS (6)
  - Electrolyte imbalance [Recovering/Resolving]
  - Malignant neoplasm progression [Unknown]
  - Decreased appetite [Recovering/Resolving]
  - Vomiting [Recovering/Resolving]
  - Fatigue [Recovering/Resolving]
  - Seizure [Recovering/Resolving]

NARRATIVE: CASE EVENT DATE: 20210619
